FAERS Safety Report 16068766 (Version 1)
Quarter: 2019Q1

REPORT INFORMATION
  Report Type: Spontaneous
  Country: HR (occurrence: HR)
  Receive Date: 20190313
  Receipt Date: 20190313
  Transmission Date: 20190418
  Serious: Yes (Other)
  Sender: FDA-Public Use
  Company Number: HR-B.I. PHARMACEUTICALS,INC./RIDGEFIELD-2019-BI-009969

PATIENT
  Age: 34 Year
  Sex: Male

DRUGS (1)
  1. GILOTRIF [Suspect]
     Active Substance: AFATINIB
     Indication: METASTATIC NEOPLASM
     Route: 065

REACTIONS (3)
  - Rash [Unknown]
  - Malignant neoplasm progression [Unknown]
  - Diarrhoea [Unknown]
